FAERS Safety Report 9493764 (Version 1)
Quarter: 2013Q3

REPORT INFORMATION
  Report Type: Spontaneous
  Country: JP (occurrence: JP)
  Receive Date: 20130902
  Receipt Date: 20130902
  Transmission Date: 20140515
  Serious: Yes (Hospitalization)
  Sender: FDA-Public Use
  Company Number: JP-ROCHE-1269261

PATIENT
  Age: 47 Year
  Sex: Male
  Weight: 73.4 kg

DRUGS (5)
  1. RITUXIMAB [Suspect]
     Indication: NON-HODGKIN^S LYMPHOMA
     Route: 065
  2. ETOPOSIDE [Concomitant]
     Indication: NON-HODGKIN^S LYMPHOMA
     Route: 065
  3. METHYLPREDNISOLONE SODIUM SUCCINATE [Concomitant]
     Indication: NON-HODGKIN^S LYMPHOMA
  4. CYTARABINE [Concomitant]
     Indication: NON-HODGKIN^S LYMPHOMA
  5. CISPLATIN [Concomitant]
     Indication: NON-HODGKIN^S LYMPHOMA

REACTIONS (2)
  - Systemic lupus erythematosus [Unknown]
  - Cytomegalovirus infection [Unknown]
